FAERS Safety Report 8999242 (Version 1)
Quarter: 2013Q1

REPORT INFORMATION
  Report Type: Spontaneous
  Country: US (occurrence: US)
  Receive Date: 20130105
  Receipt Date: 20130105
  Transmission Date: 20140127
  Serious: No
  Sender: FDA-Public Use
  Company Number: US-ASTRAZENECA-2012SE93621

PATIENT
  Age: 24 Year
  Sex: Female
  Weight: 81.6 kg

DRUGS (8)
  1. NEXIUM [Suspect]
     Indication: HELICOBACTER GASTRITIS
     Route: 048
  2. NEXIUM [Suspect]
     Indication: DYSPEPSIA
     Route: 048
  3. NEXIUM [Suspect]
     Indication: HELICOBACTER GASTRITIS
     Route: 048
  4. NEXIUM [Suspect]
     Indication: DYSPEPSIA
     Route: 048
  5. NEXIUM [Suspect]
     Indication: HELICOBACTER GASTRITIS
     Route: 048
  6. NEXIUM [Suspect]
     Indication: DYSPEPSIA
     Route: 048
  7. PYLERA [Suspect]
     Route: 065
  8. PYLERA [Suspect]
     Route: 065

REACTIONS (8)
  - Exposure during pregnancy [Unknown]
  - Feeling abnormal [Unknown]
  - Helicobacter infection [Unknown]
  - Vomiting [Unknown]
  - Nausea [Unknown]
  - Mental disorder [Unknown]
  - Abdominal pain upper [Unknown]
  - Intentional drug misuse [Unknown]
